FAERS Safety Report 6880039-7 (Version None)
Quarter: 2010Q3

REPORT INFORMATION
  Report Type: 
  Country: None (occurrence: None)
  Receive Date: 20100728
  Receipt Date: 20100715
  Transmission Date: 20110219
  Serious: Yes (Hospitalization)
  Sender: FDA-Public Use
  Company Number: FR-WYE-H16280110

PATIENT
  Sex: Female

DRUGS (7)
  1. PANTOPRAZOLE SODIUM [Suspect]
     Dosage: UNKNOWN
     Dates: start: 20010101
  2. KARDEGIC [Suspect]
     Dosage: UNKNOWN
     Route: 048
     Dates: start: 20011001, end: 20090713
  3. LEVOTHYROXINE SODIUM [Concomitant]
     Dosage: UNKNOWN
  4. TAHOR [Suspect]
     Dosage: UNKNOWN
     Dates: start: 20010101
  5. TENORMIN [Concomitant]
     Dosage: UNKNOWN
  6. COUMADIN [Suspect]
     Dosage: UNKNOWN
     Route: 048
     Dates: start: 20011001, end: 20090713
  7. RAMIPRIL [Suspect]
     Dosage: UNKNOWN
     Dates: start: 20010101

REACTIONS (2)
  - CEREBRAL HAEMATOMA [None]
  - EPILEPSY [None]
